FAERS Safety Report 15301308 (Version 1)
Quarter: 2018Q4

REPORT INFORMATION
  Report Type: Spontaneous
  Country: ES (occurrence: ES)
  Receive Date: 20180821
  Receipt Date: 20180821
  Transmission Date: 20190204
  Serious: Yes (Hospitalization, Other)
  Sender: FDA-Public Use
  Company Number: ES-TEVA-2018-ES-944869

PATIENT
  Age: 71 Year
  Sex: Male

DRUGS (13)
  1. AZATIOPRNA (IMUREL) 50 MG (AZATHIOPRINE) [Interacting]
     Active Substance: AZATHIOPRINE
     Indication: PSORIASIS
     Route: 048
     Dates: start: 20180620
  2. DUROGESIC 25 [Concomitant]
     Route: 062
     Dates: start: 20180517
  3. ALOPURINOL 100MG [Interacting]
     Active Substance: ALLOPURINOL
     Indication: HYPERURICAEMIA
  4. HIDROXIZINA 25 MG [Concomitant]
     Indication: PSORIASIS
     Dosage: 50 MILLIGRAM DAILY;
     Route: 048
     Dates: start: 20171114
  5. COLCHICINA 1 MG [Interacting]
     Active Substance: COLCHICINE
     Indication: GOUT
     Dosage: 1 MILLIGRAM DAILY; 1/24H
     Route: 048
     Dates: start: 201611
  6. OMEPRAZOL 20 [Concomitant]
     Active Substance: OMEPRAZOLE
     Route: 048
     Dates: start: 2017
  7. HEMOVAS 400 [Concomitant]
     Indication: VASCULITIC ULCER
     Route: 048
     Dates: start: 201711
  8. ARCOXIA [Concomitant]
     Active Substance: ETORICOXIB
     Route: 048
  9. ADIRO 100 MG [Concomitant]
     Active Substance: ASPIRIN
     Indication: VASCULITIC ULCER
     Dosage: 100 MILLIGRAM DAILY;
     Route: 048
     Dates: start: 201711
  10. ALOPURINOL 100MG [Suspect]
     Active Substance: ALLOPURINOL
     Indication: GOUT
     Dosage: 100 MILLIGRAM DAILY; STARTED TTO WITH 150MG A DAY AND DOES NOT CONSIST IN THAT MOMENT PASSED TO 100M
     Route: 048
     Dates: start: 201705
  11. TOVIAZ [Concomitant]
     Active Substance: FESOTERODINE FUMARATE
     Route: 065
     Dates: start: 20180620
  12. SUTRIL NEO 10 MG [Concomitant]
     Indication: TRANSURETHRAL BLADDER RESECTION
     Route: 048
     Dates: start: 20180531
  13. CLOVATE POMADA [Concomitant]
     Indication: PSORIASIS
     Route: 003
     Dates: start: 20080804

REACTIONS (5)
  - Diarrhoea [Unknown]
  - Pancytopenia [Unknown]
  - Nausea [Unknown]
  - Septic shock [Unknown]
  - Drug interaction [Unknown]

NARRATIVE: CASE EVENT DATE: 201807
